FAERS Safety Report 17248644 (Version 5)
Quarter: 2020Q3

REPORT INFORMATION
  Report Type: Report from Study
  Country: US (occurrence: US)
  Receive Date: 20200108
  Receipt Date: 20200923
  Transmission Date: 20201102
  Serious: Yes (Hospitalization)
  Sender: FDA-Public Use
  Company Number: NVSC2020US002805

PATIENT
  Sex: Female

DRUGS (1)
  1. COSENTYX [Suspect]
     Active Substance: SECUKINUMAB
     Indication: PSORIASIS
     Dosage: UNK
     Route: 065

REACTIONS (9)
  - Joint swelling [Unknown]
  - Pain in extremity [Recovered/Resolved]
  - Laboratory test abnormal [Unknown]
  - Psoriasis [Unknown]
  - Pain [Unknown]
  - Laryngeal pain [Unknown]
  - Hypokinesia [Unknown]
  - Wrong technique in product usage process [Unknown]
  - Product dose omission issue [Unknown]
